FAERS Safety Report 6590248-2 (Version None)
Quarter: 2010Q1

REPORT INFORMATION
  Report Type: 
  Country: None (occurrence: None)
  Receive Date: 20100219
  Receipt Date: 20100209
  Transmission Date: 20100710
  Serious: Yes (Other)
  Sender: FDA-Public Use
  Company Number: PHHY2009CA36412

PATIENT
  Sex: Female

DRUGS (6)
  1. SANDOSTATIN [Suspect]
     Indication: CARCINOID TUMOUR
     Dosage: 100 UG, BID
     Route: 058
     Dates: start: 20090716, end: 20090820
  2. SANDOSTATIN LAR [Suspect]
     Indication: BRONCHIAL CARCINOMA
     Dosage: 20 MG, ONCE A MONTH
     Route: 030
     Dates: start: 20090828
  3. SANDOSTATIN LAR [Suspect]
     Dosage: 10 MG EVERY 4 WEEKS
     Route: 030
  4. SANDOSTATIN LAR [Suspect]
     Dosage: UNK
     Route: 030
     Dates: start: 20090701
  5. ALBUTEROL [Concomitant]
     Dosage: UNK
  6. DEMEROP [Concomitant]

REACTIONS (5)
  - ABDOMINAL PAIN [None]
  - ASTHMA [None]
  - DYSPNOEA [None]
  - NAUSEA [None]
  - PULSE PRESSURE DECREASED [None]
